FAERS Safety Report 14804069 (Version 2)
Quarter: 2019Q2

REPORT INFORMATION
  Report Type: Spontaneous
  Country: US (occurrence: US)
  Receive Date: 20180425
  Receipt Date: 20190521
  Transmission Date: 20190711
  Serious: No
  Sender: FDA-Public Use
  Company Number: US-PFIZER INC-2018167590

PATIENT
  Age: 52 Year
  Sex: Female

DRUGS (2)
  1. XANAX [Suspect]
     Active Substance: ALPRAZOLAM
     Dosage: UNK
  2. XANAX [Suspect]
     Active Substance: ALPRAZOLAM
     Dosage: UNK [1/2 EVERY MORNING THEN 1/2 AT EVERY NIGHT AT BEDTIME AND 1/2 AS NEEDED]
     Dates: start: 20100226

REACTIONS (1)
  - Drug hypersensitivity [Unknown]
